FAERS Safety Report 7790833-6 (Version None)
Quarter: 2011Q3

REPORT INFORMATION
  Report Type: 
  Country: None (occurrence: None)
  Receive Date: 20110930
  Receipt Date: 20110921
  Transmission Date: 20111222
  Serious: Yes (Hospitalization)
  Sender: FDA-Public Use
  Company Number: JP-AMGEN-JPNCT2011043104

PATIENT
  Age: 77 Year
  Sex: Female
  Weight: 52 kg

DRUGS (3)
  1. MINOCYCLINE HCL [Concomitant]
     Dosage: UNK
     Route: 048
  2. PANITUMUMAB [Suspect]
     Dosage: 4.8 MG/KG, Q2WK
     Route: 041
     Dates: start: 20110523, end: 20110606
  3. PANITUMUMAB [Suspect]
     Indication: COLORECTAL CANCER
     Dosage: 6 MG/KG, Q2WK
     Route: 041
     Dates: start: 20100825, end: 20110105

REACTIONS (2)
  - ERYTHEMA MULTIFORME [None]
  - DRY SKIN [None]
